FAERS Safety Report 8529926-4 (Version None)
Quarter: 2012Q3

REPORT INFORMATION
  Report Type: 
  Country: None (occurrence: None)
  Receive Date: 20120723
  Receipt Date: 20120713
  Transmission Date: 20120928
  Serious: Yes (Hospitalization)
  Sender: FDA-Public Use
  Company Number: US-BAYER-2012-044347

PATIENT
  Age: 39 Year
  Sex: Female
  Weight: 141.4 kg

DRUGS (9)
  1. METOPROLOL SUCCINATE [Concomitant]
     Indication: PALPITATIONS
     Dosage: 25 MG, DAILY
     Route: 048
     Dates: start: 20090118, end: 20090208
  2. DROSPIRENONE AND ETHINYL ESTRADIOL [Suspect]
     Indication: CONTRACEPTION
     Dosage: UNK
     Dates: start: 20080101, end: 20090208
  3. TOPROL-XL [Concomitant]
  4. NSAID'S [Concomitant]
     Dosage: UNK UNK, PRN
     Route: 048
     Dates: start: 20020101, end: 20090101
  5. YASMIN [Suspect]
     Indication: CONTRACEPTION
     Dosage: UNK
     Dates: start: 20031111, end: 20080101
  6. METOPROLOL SUCCINATE [Concomitant]
     Dosage: 25 MG
  7. PRILOSEC [Concomitant]
     Indication: DYSPEPSIA
     Dosage: 20 MG, DAILY
     Route: 048
     Dates: start: 20090118, end: 20090208
  8. ADVIL [Concomitant]
  9. PROPOXYPHENE HCL AND ACETAMINOPHEN [Concomitant]
     Dosage: 100-650 MG

REACTIONS (8)
  - JOINT SWELLING [None]
  - DEEP VEIN THROMBOSIS [None]
  - ANHEDONIA [None]
  - VASODILATATION [None]
  - EMOTIONAL DISTRESS [None]
  - OEDEMA PERIPHERAL [None]
  - INJURY [None]
  - PAIN [None]
